FAERS Safety Report 5901312-2 (Version None)
Quarter: 2008Q3

REPORT INFORMATION
  Report Type: 
  Country: None (occurrence: None)
  Receive Date: 20080929
  Receipt Date: 20080917
  Transmission Date: 20090109
  Serious: Yes (Hospitalization)
  Sender: FDA-Public Use
  Company Number: US-ELI_LILLY_AND_COMPANY-US200809003893

PATIENT
  Sex: Female

DRUGS (2)
  1. GEMZAR [Suspect]
     Indication: OVARIAN CANCER RECURRENT
     Dates: start: 20080912
  2. CARBOPLATIN [Concomitant]
     Indication: OVARIAN CANCER RECURRENT

REACTIONS (2)
  - MALAISE [None]
  - PANCREATITIS [None]
